FAERS Safety Report 7032324-6 (Version None)
Quarter: 2010Q4

REPORT INFORMATION
  Report Type: 
  Country: None (occurrence: None)
  Receive Date: 20101005
  Receipt Date: 20100920
  Transmission Date: 20110411
  Serious: Yes (Hospitalization, Other)
  Sender: FDA-Public Use
  Company Number: UK-ACCORD-003103

PATIENT
  Age: 40 Year
  Sex: Male

DRUGS (1)
  1. MITOMYCIN [Suspect]
     Indication: BLADDER CANCER RECURRENT
     Dosage: 40.00-MG- / INTRAVESICAL
     Route: 043

REACTIONS (8)
  - ABDOMINAL PAIN LOWER [None]
  - CONSTIPATION [None]
  - CYSTITIS [None]
  - DYSURIA [None]
  - HYDRONEPHROSIS [None]
  - LOCALISED INTRAABDOMINAL FLUID COLLECTION [None]
  - MALAISE [None]
  - URINOMA [None]
